FAERS Safety Report 21253139 (Version 1)
Quarter: 2022Q3

REPORT INFORMATION
  Report Type: Spontaneous
  Country: CH (occurrence: CH)
  Receive Date: 20220825
  Receipt Date: 20220825
  Transmission Date: 20221026
  Serious: Yes (Other)
  Sender: FDA-Public Use
  Company Number: CH-GUERBET-CH-20220038

PATIENT
  Age: 34 Year
  Sex: Female
  Weight: 108 kg

DRUGS (1)
  1. DOTAREM [Suspect]
     Active Substance: GADOTERATE MEGLUMINE
     Indication: Magnetic resonance imaging joint
     Route: 042
     Dates: start: 20220812, end: 20220812

REACTIONS (3)
  - Dark circles under eyes [Recovered/Resolved]
  - Flushing [Recovered/Resolved]
  - Palatal swelling [Recovered/Resolved]

NARRATIVE: CASE EVENT DATE: 20220812
